FAERS Safety Report 24767305 (Version 6)
Quarter: 2025Q3

REPORT INFORMATION
  Report Type: Spontaneous
  Country: US (occurrence: US)
  Receive Date: 20241223
  Receipt Date: 20250804
  Transmission Date: 20251021
  Serious: Yes (Disabling, Other)
  Sender: AMGEN
  Company Number: US-AMGEN-USASP2024248807

PATIENT
  Age: 65 Year
  Sex: Female
  Weight: 50 kg

DRUGS (35)
  1. TEPEZZA [Suspect]
     Active Substance: TEPROTUMUMAB-TRBW
     Indication: Graves^ disease
     Route: 040
     Dates: start: 202008, end: 202012
  2. TEPEZZA [Suspect]
     Active Substance: TEPROTUMUMAB-TRBW
     Indication: Endocrine ophthalmopathy
     Dosage: 540 MILLIGRAM, QD (FIRST INFUSION)(EVERY 1 DAY FOR 1 DAY)
     Route: 040
     Dates: start: 20230116
  3. TEPEZZA [Suspect]
     Active Substance: TEPROTUMUMAB-TRBW
     Dosage: 1080 MILLIGRAM, Q3WK (SECOND INFUSION) ( FOR 1 YEAR)
     Route: 040
     Dates: start: 20230206
  4. TEPEZZA [Suspect]
     Active Substance: TEPROTUMUMAB-TRBW
     Dosage: 1080 MILLIGRAM, Q3WK (THIRD INFUSION) ( FOR 1 YEAR)
     Route: 040
     Dates: start: 20230227
  5. TEPEZZA [Suspect]
     Active Substance: TEPROTUMUMAB-TRBW
     Dosage: 1080 MILLIGRAM, Q3WK (FIFTH INFUSION) ( FOR 1 YEAR)
     Route: 040
     Dates: start: 20230320
  6. TEPEZZA [Suspect]
     Active Substance: TEPROTUMUMAB-TRBW
     Dosage: 1080 MILLIGRAM, Q3WK (FOR 6 MONTHS)
     Route: 040
     Dates: start: 20230413
  7. TEPEZZA [Suspect]
     Active Substance: TEPROTUMUMAB-TRBW
     Dosage: 1080 MILLIGRAM, Q3WK (FOR 6 MONTH)
     Route: 040
     Dates: start: 20230504
  8. TEPEZZA [Suspect]
     Active Substance: TEPROTUMUMAB-TRBW
     Dosage: 20 MILLIGRAM/KILOGRAM, Q3WK (SIXTH INFUSION)
     Route: 040
     Dates: start: 202306
  9. TEPEZZA [Suspect]
     Active Substance: TEPROTUMUMAB-TRBW
     Dosage: 20 MILLIGRAM/KILOGRAM, Q3WK
     Route: 040
     Dates: start: 20230912, end: 20230912
  10. PREDNISONE [Suspect]
     Active Substance: PREDNISONE
     Indication: Eye pain
     Dosage: 50 MILLIGRAM, QD (50 MG FOR 5 DAYS AND DRECREASE BY 10MG EVERY 5 DAYS)
     Route: 048
     Dates: start: 20200513, end: 20200604
  11. PREDNISONE [Suspect]
     Active Substance: PREDNISONE
     Indication: Diplopia
     Route: 048
  12. PREDNISONE [Suspect]
     Active Substance: PREDNISONE
     Route: 048
  13. ELIQUIS [Concomitant]
     Active Substance: APIXABAN
     Route: 048
  14. ALBUTEROL SULFATE [Concomitant]
     Active Substance: ALBUTEROL SULFATE
     Route: 065
  15. ERYTHROMYCIN [Concomitant]
     Active Substance: ERYTHROMYCIN
     Dosage: 5 MILLIGRAM/GRAM, QID (1 APPLICATION INTO THE SUTURES AND LOWER CONJUNCTIVAL SAC OF AFFECTED EYE)
     Route: 047
  16. ESCITALOPRAM OXALATE [Concomitant]
     Active Substance: ESCITALOPRAM OXALATE
     Route: 065
  17. ESCITALOPRAM OXALATE [Concomitant]
     Active Substance: ESCITALOPRAM OXALATE
     Dosage: 20 MILLIGRAM, QD
     Route: 048
  18. TIROSINT [Concomitant]
     Active Substance: LEVOTHYROXINE SODIUM
     Route: 048
  19. TIROSINT [Concomitant]
     Active Substance: LEVOTHYROXINE SODIUM
     Route: 048
  20. MELOXICAM [Concomitant]
     Active Substance: MELOXICAM
     Route: 048
  21. TRIAMTERENE AND HYDROCHLOROTHIAZIDE [Concomitant]
     Active Substance: HYDROCHLOROTHIAZIDE\TRIAMTERENE
     Dosage: 62.5 MILLIGRAM, QD (37.5-25 MG)
     Route: 048
  22. ZOLPIDEM TARTRATE [Concomitant]
     Active Substance: ZOLPIDEM TARTRATE
     Route: 060
  23. REFRESH CLASSIC [Concomitant]
     Active Substance: POLYVINYL ALCOHOL\POVIDONE
     Dosage: UNK UNK, BID (GTTS)
     Route: 047
  24. SODIUM CHLORIDE [Concomitant]
     Active Substance: SODIUM CHLORIDE
     Route: 065
  25. STERILE WATER [Concomitant]
     Active Substance: WATER
     Route: 065
     Dates: start: 20230413
  26. STERILE WATER [Concomitant]
     Active Substance: WATER
     Route: 065
     Dates: start: 20230504
  27. POLYVINYL ALCOHOL [Concomitant]
     Active Substance: POLYVINYL ALCOHOL
     Route: 065
  28. ARMOUR THYROID [Concomitant]
     Active Substance: THYROID, PORCINE
     Dosage: 90 MILLIGRAM, QD
     Route: 048
  29. SYNTHROID [Concomitant]
     Active Substance: LEVOTHYROXINE SODIUM
     Route: 065
  30. FISH OIL [Concomitant]
     Active Substance: FISH OIL
     Dosage: 1000 MILLIGRAM, QD
     Route: 048
  31. VITAMIN D [Concomitant]
     Active Substance: VITAMIN D NOS
     Dosage: 1.25 MILLIGRAM, 2 TIMES/WK
     Route: 048
  32. VYVANSE [Concomitant]
     Active Substance: LISDEXAMFETAMINE DIMESYLATE
     Dosage: 30 MILLIGRAM, QD (MORNING)
     Route: 048
  33. TRINTELLIX [Concomitant]
     Active Substance: VORTIOXETINE HYDROBROMIDE
     Dosage: 10 MILLIGRAM, QD
     Route: 048
  34. AMBIEN [Concomitant]
     Active Substance: ZOLPIDEM TARTRATE
     Dosage: 5 MILLIGRAM, QD (BEDTIME)
     Route: 048
  35. MAGNESIUM [Concomitant]
     Active Substance: MAGNESIUM
     Dosage: 500 MILLIGRAM, QD (WITH A MEAL)
     Route: 048

REACTIONS (47)
  - Deafness permanent [Not Recovered/Not Resolved]
  - Deafness neurosensory [Not Recovered/Not Resolved]
  - Endocrine ophthalmopathy [Unknown]
  - Graves^ disease [Unknown]
  - Deep vein thrombosis [Unknown]
  - Pain [Unknown]
  - Emotional distress [Unknown]
  - Anxiety [Unknown]
  - Discomfort [Unknown]
  - Product use complaint [Unknown]
  - Thyroid dermatopathy [Recovering/Resolving]
  - Off label use [Unknown]
  - Blood pressure increased [Unknown]
  - Arthralgia [Unknown]
  - Muscular weakness [Unknown]
  - Hypoaesthesia [Unknown]
  - Paraesthesia [Unknown]
  - Tremor [Unknown]
  - Vomiting [Unknown]
  - Diplopia [Recovering/Resolving]
  - Cerumen impaction [Unknown]
  - Eustachian tube patulous [Recovered/Resolved]
  - Blood glucose increased [Unknown]
  - Alopecia [Unknown]
  - Dry skin [Unknown]
  - Fungal infection [Not Recovered/Not Resolved]
  - Muscle spasms [Unknown]
  - Headache [Unknown]
  - Fatigue [Unknown]
  - Eye pain [Recovering/Resolving]
  - Depressed mood [Unknown]
  - Ear pain [Recovered/Resolved]
  - Nail disorder [Recovering/Resolving]
  - Clubbing [Not Recovered/Not Resolved]
  - Post procedural hypothyroidism [Unknown]
  - Osteoporosis [Unknown]
  - Blood thyroid stimulating hormone increased [Unknown]
  - Thyroxine free decreased [Unknown]
  - Red blood cell count increased [Unknown]
  - Red cell distribution width increased [Unknown]
  - Neutrophil count increased [Unknown]
  - Blood urea increased [Unknown]
  - Blood urea nitrogen/creatinine ratio increased [Unknown]
  - Blood potassium increased [Unknown]
  - Insomnia [Unknown]
  - Restless legs syndrome [Unknown]
  - Off label use [Unknown]

NARRATIVE: CASE EVENT DATE: 20200513
